FAERS Safety Report 9419026 (Version 2)
Quarter: 2013Q3

REPORT INFORMATION
  Report Type: Report from Study
  Country: BR (occurrence: BR)
  Receive Date: 20130725
  Receipt Date: 20130728
  Transmission Date: 20140515
  Serious: Yes (Other)
  Sender: FDA-Public Use
  Company Number: PHHY2013BR078259

PATIENT
  Age: 79 Year
  Sex: Female

DRUGS (2)
  1. EXELON PATCH [Suspect]
     Indication: DEMENTIA ALZHEIMER^S TYPE
     Dosage: 9.5 MG (PATCH 10 CM2), DAILY
     Route: 062
     Dates: start: 201301, end: 20130718
  2. EXELON PATCH [Suspect]
     Dosage: 9.5 MG (PATCH 10 CM2), DAILY
     Route: 062

REACTIONS (6)
  - Amnesia [Not Recovered/Not Resolved]
  - Dementia Alzheimer^s type [Not Recovered/Not Resolved]
  - Incorrect drug administration duration [Unknown]
  - Application site pruritus [Recovered/Resolved]
  - Application site oedema [Recovered/Resolved]
  - Application site erythema [Recovered/Resolved]
